FAERS Safety Report 24827660 (Version 1)
Quarter: 2025Q1

REPORT INFORMATION
  Report Type: Spontaneous
  Country: PT (occurrence: PT)
  Receive Date: 20250109
  Receipt Date: 20250109
  Transmission Date: 20250409
  Serious: Yes (Hospitalization)
  Sender: MYLAN
  Company Number: PT-STADA-01335044

PATIENT
  Age: 72 Year
  Sex: Male

DRUGS (4)
  1. METHOTREXATE [Suspect]
     Active Substance: METHOTREXATE
     Indication: Musculoskeletal stiffness
     Dosage: 2.5 MILLIGRAM, QD
     Route: 065
  2. ETORICOXIB [Suspect]
     Active Substance: ETORICOXIB
     Indication: Pain
     Dosage: 90 MILLIGRAM, QD
     Route: 065
  3. PREDNISOLONE [Concomitant]
     Active Substance: PREDNISOLONE
     Indication: Musculoskeletal stiffness
     Dosage: 2.5 MILLIGRAM, QD
     Route: 065
  4. PREDNISOLONE [Concomitant]
     Active Substance: PREDNISOLONE
     Dosage: 20 MILLIGRAM, QD
     Route: 065

REACTIONS (6)
  - Accidental poisoning [Unknown]
  - Pharyngeal exudate [Unknown]
  - Myelosuppression [Unknown]
  - Herpes simplex [Unknown]
  - Pneumonia pneumococcal [Unknown]
  - Inappropriate schedule of product administration [Unknown]
